FAERS Safety Report 13824592 (Version 1)
Quarter: 2017Q3

REPORT INFORMATION
  Report Type: Spontaneous
  Country: US (occurrence: US)
  Receive Date: 20170802
  Receipt Date: 20170802
  Transmission Date: 20171127
  Serious: No
  Sender: FDA-Public Use
  Company Number: None

PATIENT
  Sex: Female

DRUGS (1)
  1. EPINEPHRINE AUTO INJECTOR PEN [Suspect]
     Active Substance: EPINEPHRINE
     Dates: start: 20170725, end: 20170725

REACTIONS (5)
  - Throat tightness [None]
  - Anaphylactic reaction [None]
  - Pruritus [None]
  - Confusional state [None]
  - Device malfunction [None]

NARRATIVE: CASE EVENT DATE: 20170725
